FAERS Safety Report 5299724-6 (Version None)
Quarter: 2007Q2

REPORT INFORMATION
  Report Type: 
  Country: None (occurrence: None)
  Receive Date: 20070410
  Receipt Date: 20070326
  Transmission Date: 20071010
  Serious: Yes (Hospitalization)
  Sender: FDA-Public Use
  Company Number: 15718

PATIENT
  Age: 67 Year
  Sex: Female

DRUGS (4)
  1. CYTARABINE [Suspect]
     Indication: ACUTE MYELOID LEUKAEMIA
     Dosage: 20 MG/M2
     Dates: start: 20061228, end: 20070106
  2. PREDNISONE TAB [Concomitant]
  3. METOPROLOL SUCCINATE [Concomitant]
  4. FAMOTIDINE [Concomitant]

REACTIONS (4)
  - INFECTION IN AN IMMUNOCOMPROMISED HOST [None]
  - PANCYTOPENIA [None]
  - PLEURAL EFFUSION [None]
  - PNEUMONIA [None]
